FAERS Safety Report 19361160 (Version 5)
Quarter: 2021Q3

REPORT INFORMATION
  Report Type: Report from Study
  Country: US (occurrence: US)
  Receive Date: 20210603
  Receipt Date: 20210825
  Transmission Date: 20211014
  Serious: No
  Sender: FDA-Public Use
  Company Number: NVSC2021US124168

PATIENT
  Age: 69 Year
  Sex: Male

DRUGS (1)
  1. ENTRESTO [Suspect]
     Active Substance: SACUBITRIL\VALSARTAN
     Indication: CARDIAC FAILURE
     Dosage: 100 MG, BID (49/51MG)
     Route: 048
     Dates: start: 20210527

REACTIONS (6)
  - Cough [Unknown]
  - Back pain [Unknown]
  - Fatigue [Unknown]
  - Nocturia [Unknown]
  - Flank pain [Unknown]
  - Insomnia [Unknown]

NARRATIVE: CASE EVENT DATE: 20210608
